FAERS Safety Report 17979942 (Version 7)
Quarter: 2024Q1

REPORT INFORMATION
  Report Type: Spontaneous
  Country: IT (occurrence: IT)
  Receive Date: 20200703
  Receipt Date: 20240328
  Transmission Date: 20240410
  Serious: Yes (Death, Hospitalization)
  Sender: FDA-Public Use
  Company Number: IT-ROCHE-2609084

PATIENT
  Age: 66 Year
  Sex: Female
  Weight: 57 kg

DRUGS (35)
  1. LAPATINIB [Suspect]
     Active Substance: LAPATINIB
     Indication: Breast cancer
     Dosage: 1000 MG, QD
     Route: 048
     Dates: start: 20181219, end: 20190326
  2. DOCETAXEL [Suspect]
     Active Substance: DOCETAXEL\DOCETAXEL ANHYDROUS
     Indication: Breast cancer
     Dosage: 110 MG, TIW
     Route: 042
     Dates: start: 20170727
  3. VINORELBINE [Suspect]
     Active Substance: VINORELBINE TARTRATE
     Indication: Breast cancer
     Dosage: 35 MG (OTHER)
     Route: 042
     Dates: start: 20190327, end: 20190620
  4. GEMCITABINE [Suspect]
     Active Substance: GEMCITABINE
     Indication: Breast cancer
     Dosage: 1400 MG (OTHER)
     Route: 042
     Dates: start: 20190627
  5. CAPECITABINE [Suspect]
     Active Substance: CAPECITABINE
     Indication: Breast cancer
     Dosage: 2500 MG
     Route: 048
     Dates: start: 20181219, end: 20190326
  6. ADO-TRASTUZUMAB EMTANSINE [Suspect]
     Active Substance: ADO-TRASTUZUMAB EMTANSINE
     Indication: Breast cancer
     Dosage: 190 MG, TIW (MOST RECENT DOSE PRIOR TO THE EVENT: 24/AUG/2018)
     Route: 042
     Dates: start: 20180706, end: 20180706
  7. TAXOTERE [Suspect]
     Active Substance: DOCETAXEL
     Indication: HER2 positive breast cancer
     Dosage: 1000 MG, Q3W (MOST RECENT DOSE RECEIVED ON 08/FEB/2018)
     Route: 042
     Dates: start: 20170727, end: 20180208
  8. TAXOTERE [Suspect]
     Active Substance: DOCETAXEL
     Dosage: 110 MG, Q3W
     Route: 042
     Dates: start: 20170727, end: 20180208
  9. HERCEPTIN [Suspect]
     Active Substance: TRASTUZUMAB
     Indication: HER2 positive breast cancer
     Dosage: 470 MG, Q3W (MOST RECENT DOSE PRIOR TO EVENT 19/APR/2019)
     Route: 042
     Dates: start: 20170727, end: 20170727
  10. HERCEPTIN [Suspect]
     Active Substance: TRASTUZUMAB
     Dosage: 350 MG, Q3W
     Route: 042
     Dates: start: 20190327, end: 20190327
  11. HERCEPTIN [Suspect]
     Active Substance: TRASTUZUMAB
     Dosage: 6 MG/KG, Q3W
     Route: 042
     Dates: start: 20180117, end: 20180601
  12. HERCEPTIN [Suspect]
     Active Substance: TRASTUZUMAB
     Dosage: 6 MG/KG, Q3W
     Route: 042
     Dates: start: 20170817, end: 20171206
  13. HERCEPTIN [Suspect]
     Active Substance: TRASTUZUMAB
     Dosage: 260 MG, Q3W
     Route: 042
     Dates: start: 20190419, end: 20200228
  14. KADCYLA [Suspect]
     Active Substance: ADO-TRASTUZUMAB EMTANSINE
     Indication: HER2 positive breast cancer
     Dosage: 190 MG, Q3W (MOST RECENT DOSE PRIOR TO THE EVENT: 24/AUG/2018)
     Route: 042
     Dates: start: 20180706, end: 20180706
  15. KADCYLA [Suspect]
     Active Substance: ADO-TRASTUZUMAB EMTANSINE
     Dosage: 180 MG, Q3W
     Route: 042
     Dates: start: 20180824, end: 20181027
  16. GEMZAR [Suspect]
     Active Substance: GEMCITABINE HYDROCHLORIDE
     Indication: HER2 positive breast cancer
     Dosage: 1400 MG (MOST RECENT DOSE RECEIVED ON 28/FEB/2020)
     Route: 042
     Dates: start: 20190627, end: 20200228
  17. XELODA [Suspect]
     Active Substance: CAPECITABINE
     Indication: HER2 positive breast cancer
     Dosage: 2500 MG (MOST RECENT DOSE RECEIVED ON 26/MAR/2019)
     Route: 048
     Dates: start: 20181219, end: 20190326
  18. NAVELBINE [Suspect]
     Active Substance: VINORELBINE TARTRATE
     Indication: HER2 positive breast cancer
     Dosage: 35 MG (MOST RECENT DOSE RECEIVED ON 20/JUN/2019)
     Route: 042
     Dates: start: 20190327, end: 20190620
  19. PERJETA [Suspect]
     Active Substance: PERTUZUMAB
     Indication: HER2 positive breast cancer
     Dosage: 840 MG, Q3W(MOST RECENT DOSE PRIOR TO EVENT 17/AUG/2017)
     Route: 042
     Dates: start: 20170727, end: 20170727
  20. PERJETA [Suspect]
     Active Substance: PERTUZUMAB
     Dosage: 840 MG, Q3W
     Route: 042
     Dates: start: 20180117, end: 20180601
  21. PERJETA [Suspect]
     Active Substance: PERTUZUMAB
     Dosage: 840 MG, Q3W
     Route: 042
     Dates: start: 20170817, end: 20171206
  22. TYKERB [Suspect]
     Active Substance: LAPATINIB DITOSYLATE
     Indication: HER2 positive breast cancer
     Dosage: 1000 MG, QD (MOST RECENT DOSE RECEIVED ON 26/MAR/2019)
     Route: 048
     Dates: start: 20181219, end: 20190326
  23. TRASTUZUMAB [Suspect]
     Active Substance: TRASTUZUMAB
     Indication: Breast cancer
     Dosage: 470 MG, TIW (MOST RECENT DOSE PRIOR TO EVENT 19 APR 2019)
     Route: 041
     Dates: start: 20170727, end: 20170727
  24. PERTUZUMAB [Suspect]
     Active Substance: PERTUZUMAB
     Indication: Breast cancer
     Dosage: 840 MG (MOST RECENT DOSE PRIOR TO EVENT 17/AUG/2017)
     Route: 042
     Dates: start: 20170727, end: 20170727
  25. BARNIDIPINE HYDROCHLORIDE [Concomitant]
     Active Substance: BARNIDIPINE HYDROCHLORIDE
     Indication: Product used for unknown indication
     Dosage: 10 MG
     Route: 048
     Dates: end: 20190704
  26. BARNIDIPINE HYDROCHLORIDE [Concomitant]
     Active Substance: BARNIDIPINE HYDROCHLORIDE
     Dosage: 1.25 MG
     Route: 048
     Dates: start: 20190704
  27. CHLORPHENIRAMINE MALEATE [Concomitant]
     Active Substance: CHLORPHENIRAMINE MALEATE
     Indication: Product used for unknown indication
     Dosage: 10 MG
     Route: 042
     Dates: start: 20170727
  28. RANITIDINE [Concomitant]
     Active Substance: RANITIDINE
     Indication: Product used for unknown indication
     Dosage: 50 MG
     Route: 042
     Dates: start: 20170727, end: 20180208
  29. DENOSUMAB [Concomitant]
     Active Substance: DENOSUMAB
     Indication: Product used for unknown indication
     Dosage: UNK
     Route: 065
     Dates: start: 20190529, end: 20191206
  30. DENOSUMAB [Concomitant]
     Active Substance: DENOSUMAB
     Dosage: 120 MG
     Route: 058
     Dates: start: 20190529, end: 20191206
  31. METOCLOPRAMIDE [Concomitant]
     Active Substance: METOCLOPRAMIDE
     Indication: Product used for unknown indication
     Dosage: 10 MG
     Route: 042
     Dates: start: 20170727, end: 20180208
  32. DEXAMETHASONE [Concomitant]
     Active Substance: DEXAMETHASONE
     Indication: Product used for unknown indication
     Dosage: 4 MG
     Route: 042
     Dates: start: 20170727, end: 20190927
  33. GRANISETRON [Concomitant]
     Active Substance: GRANISETRON
     Indication: Product used for unknown indication
     Dosage: 3 MG
     Route: 042
     Dates: start: 20170727, end: 20200220
  34. HYDROCHLOROTHIAZIDE\IRBESARTAN [Concomitant]
     Active Substance: HYDROCHLOROTHIAZIDE\IRBESARTAN
     Indication: Product used for unknown indication
     Dosage: 300 MG, QD
     Route: 065
     Dates: end: 20190718
  35. BISOPROLOL [Concomitant]
     Active Substance: BISOPROLOL\BISOPROLOL FUMARATE
     Indication: Product used for unknown indication
     Dosage: 1.25 MG, QD
     Route: 065
     Dates: start: 20190704

REACTIONS (5)
  - Breast cancer [Fatal]
  - General physical health deterioration [Fatal]
  - Emotional distress [Unknown]
  - Hepatic failure [Unknown]
  - Hypocalcaemia [Recovered/Resolved]

NARRATIVE: CASE EVENT DATE: 20190802
